FAERS Safety Report 6344740-6 (Version None)
Quarter: 2009Q3

REPORT INFORMATION
  Report Type: 
  Country: None (occurrence: None)
  Receive Date: 20090904
  Receipt Date: 20090824
  Transmission Date: 20100115
  Serious: Yes (Other)
  Sender: FDA-Public Use
  Company Number: 2009AP003053

PATIENT
  Age: 72 Year
  Sex: Female

DRUGS (1)
  1. DILT-XR (120 MG) [Suspect]
     Indication: HYPERTENSION
     Dosage: 120 MG;QD;PO
     Route: 048
     Dates: start: 20090717, end: 20090727

REACTIONS (7)
  - CONDITION AGGRAVATED [None]
  - EOSINOPHIL COUNT INCREASED [None]
  - INSOMNIA [None]
  - RASH [None]
  - RASH GENERALISED [None]
  - RASH PRURITIC [None]
  - SKIN LESION [None]
